FAERS Safety Report 14050645 (Version 1)
Quarter: 2017Q4

REPORT INFORMATION
  Report Type: Report from Study
  Country: US (occurrence: US)
  Receive Date: 20171005
  Receipt Date: 20171005
  Transmission Date: 20180321
  Serious: Yes (Other)
  Sender: FDA-Public Use
  Company Number: US-MYLANLABS-2017M1061925

PATIENT
  Age: 26 Year
  Sex: Male

DRUGS (1)
  1. LOPERAMIDE [Suspect]
     Active Substance: LOPERAMIDE
     Indication: PRODUCT USED FOR UNKNOWN INDICATION
     Dosage: 180MG
     Route: 048

REACTIONS (8)
  - Ventricular tachycardia [Unknown]
  - Arrhythmia [Unknown]
  - Drug abuse [Unknown]
  - Hepatic enzyme increased [Unknown]
  - Intentional overdose [Unknown]
  - Electrolyte imbalance [Unknown]
  - Bradycardia [Unknown]
  - Hyperglycaemia [Unknown]
